FAERS Safety Report 14022374 (Version 1)
Quarter: 2017Q3

REPORT INFORMATION
  Report Type: Spontaneous
  Country: US (occurrence: US)
  Receive Date: 20170928
  Receipt Date: 20170928
  Transmission Date: 20171128
  Serious: Yes (Other)
  Sender: FDA-Public Use
  Company Number: US-ASTRAZENECA-2017SE98078

PATIENT
  Sex: Male

DRUGS (7)
  1. MORPHINE SULFATE. [Suspect]
     Active Substance: MORPHINE SULFATE
     Dosage: NON-AZ PRODUCT
     Route: 065
  2. LEVETIRACETAM. [Suspect]
     Active Substance: LEVETIRACETAM
     Route: 065
  3. DIAZEPAM. [Suspect]
     Active Substance: DIAZEPAM
     Dosage: DOSE UNKNOWN
     Route: 065
  4. HYDROMORPHONE [Concomitant]
     Active Substance: HYDROMORPHONE
  5. NEXIUM [Suspect]
     Active Substance: ESOMEPRAZOLE MAGNESIUM
     Dosage: DOSE UNKNOWN
     Route: 048
  6. LYRICA [Suspect]
     Active Substance: PREGABALIN
     Dosage: DOSE UNKNOWN
     Route: 065
  7. FENTANYL CITRATE. [Suspect]
     Active Substance: FENTANYL CITRATE
     Dosage: DOSE UNKNOWN
     Route: 065

REACTIONS (7)
  - Fatigue [Unknown]
  - Visual impairment [Unknown]
  - Hypoacusis [Unknown]
  - Drug abuse [Unknown]
  - Constipation [Unknown]
  - Sexual dysfunction [Unknown]
  - Weight increased [Unknown]
